FAERS Safety Report 18525349 (Version 1)
Quarter: 2020Q4

REPORT INFORMATION
  Report Type: Report from Study
  Country: US (occurrence: US)
  Receive Date: 20201119
  Receipt Date: 20201119
  Transmission Date: 20210114
  Serious: Yes (Hospitalization)
  Sender: FDA-Public Use
  Company Number: US-DECIPHERA PHARMACEUTICALS LLC-2019-US-000063

PATIENT
  Age: 69 Year
  Sex: Male
  Weight: 56.8 kg

DRUGS (43)
  1. DCC-2618 [Suspect]
     Active Substance: RIPRETINIB
     Dosage: 150 MG, BID
     Route: 048
     Dates: start: 20170726, end: 20171211
  2. DCC-2618 [Suspect]
     Active Substance: RIPRETINIB
     Dosage: 100 MILLIGRAM, QD
     Route: 048
     Dates: start: 20180306, end: 20180306
  3. IMODIUM [Concomitant]
     Active Substance: LOPERAMIDE HYDROCHLORIDE
     Dosage: UNK
     Route: 048
  4. LOMOTIL [Concomitant]
     Active Substance: ATROPINE SULFATE\DIPHENOXYLATE HYDROCHLORIDE
     Dosage: UNK
     Route: 048
  5. LISINOPRIL. [Concomitant]
     Active Substance: LISINOPRIL
     Dosage: UNK
     Route: 048
  6. FERGON [Concomitant]
     Active Substance: FERROUS GLUCONATE
     Indication: SUPPLEMENTATION THERAPY
     Dosage: 240 MG, UNK
     Route: 048
     Dates: start: 20170919
  7. HYDRODIURIL [Concomitant]
     Active Substance: HYDROCHLOROTHIAZIDE
     Indication: HYPERTENSION
     Dosage: 12.5 MG, UNK
     Route: 048
     Dates: start: 20181016
  8. GLYCOLAX [Concomitant]
     Active Substance: POLYETHYLENE GLYCOL 3350
     Indication: CONSTIPATION
     Dosage: UNK
     Route: 065
     Dates: start: 20180828
  9. DCC-2618 [Suspect]
     Active Substance: RIPRETINIB
     Dosage: 150 MG, QD
     Route: 048
     Dates: start: 20181125, end: 20181205
  10. DCC-2618 [Suspect]
     Active Substance: RIPRETINIB
     Dosage: 150 MG, BID
     Route: 048
     Dates: start: 20180307, end: 20180311
  11. LOTRIMIN [Concomitant]
     Active Substance: CLOTRIMAZOLE
     Indication: RASH
     Dosage: UNK
     Route: 061
     Dates: start: 20180910
  12. DCC-2618 [Suspect]
     Active Substance: RIPRETINIB
     Dosage: 150 MG, QD
     Route: 048
     Dates: start: 20171212, end: 20171212
  13. DCC-2618 [Suspect]
     Active Substance: RIPRETINIB
     Dosage: 150 MG, QD
     Route: 048
     Dates: start: 20180918, end: 20181123
  14. NEXIUM [Concomitant]
     Active Substance: ESOMEPRAZOLE MAGNESIUM
     Indication: GASTROOESOPHAGEAL REFLUX DISEASE
     Dosage: 40 MG, QD
     Route: 048
  15. ZYRTEC [Concomitant]
     Active Substance: CETIRIZINE HYDROCHLORIDE
     Indication: SEASONAL ALLERGY
     Dosage: UNK
     Route: 048
  16. DIFLUCAN [Concomitant]
     Active Substance: FLUCONAZOLE
     Indication: INFECTION
     Dosage: 240 MG, UNK
     Route: 048
     Dates: start: 20180403
  17. KLOR-CON [Concomitant]
     Active Substance: POTASSIUM CHLORIDE
     Indication: SUPPLEMENTATION THERAPY
     Dosage: 20 MEQ, UNK
     Route: 048
     Dates: start: 20170421
  18. SENOKOT [Concomitant]
     Active Substance: SENNOSIDES
     Indication: CONSTIPATION
     Dosage: UNK
     Route: 065
     Dates: start: 20180828
  19. HUMALOG [Concomitant]
     Active Substance: INSULIN LISPRO
     Indication: HYPERGLYCAEMIA
     Dosage: UNK
     Route: 058
     Dates: start: 20180509
  20. DCC-2618 [Suspect]
     Active Substance: RIPRETINIB
     Dosage: 150 MG, BID
     Route: 048
     Dates: start: 20180228, end: 20180305
  21. IMODIUM [Concomitant]
     Active Substance: LOPERAMIDE HYDROCHLORIDE
     Indication: DIARRHOEA
     Dosage: UNK
     Route: 048
  22. MINOCYCLINE [Concomitant]
     Active Substance: MINOCYCLINE HYDROCHLORIDE
     Indication: ABDOMINAL ABSCESS
     Dosage: 100 MG, UNK
     Route: 048
     Dates: start: 20181210, end: 20190304
  23. LEVOFLOXACIN. [Concomitant]
     Active Substance: LEVOFLOXACIN
     Indication: ABSCESS
     Dosage: 750 MG, UNK
     Route: 048
     Dates: start: 20180716, end: 20190529
  24. DIPHENHYDRAMINE. [Concomitant]
     Active Substance: DIPHENHYDRAMINE
     Indication: RASH
     Dosage: UNK
     Route: 065
     Dates: start: 20180508
  25. DCC-2618 [Suspect]
     Active Substance: RIPRETINIB
     Dosage: 150 MG, QD
     Route: 048
     Dates: start: 20181211, end: 20190401
  26. DCC-2618 [Suspect]
     Active Substance: RIPRETINIB
     Dosage: 100 MG, QD
     Route: 048
     Dates: start: 20180306, end: 20180306
  27. DCC-2618 [Suspect]
     Active Substance: RIPRETINIB
     Dosage: 150 MG, BID
     Route: 048
     Dates: start: 20171213, end: 20180226
  28. DCC-2618 [Suspect]
     Active Substance: RIPRETINIB
     Dosage: 150 MG, QD
     Route: 048
     Dates: start: 20180227, end: 20180227
  29. DCC-2618 [Suspect]
     Active Substance: RIPRETINIB
     Dosage: 150 MG, QD
     Route: 048
     Dates: start: 20180312, end: 20180312
  30. LOMOTIL [Concomitant]
     Active Substance: ATROPINE SULFATE\DIPHENOXYLATE HYDROCHLORIDE
     Indication: DIARRHOEA
     Dosage: UNK
     Route: 048
  31. LISINOPRIL. [Concomitant]
     Active Substance: LISINOPRIL
     Indication: HYPERTENSION
     Dosage: UNK
     Route: 048
  32. DCC-2618 [Suspect]
     Active Substance: RIPRETINIB
     Dosage: 150 MG, QD
     Route: 048
     Dates: start: 20170725, end: 20170725
  33. VITAMIN B12 [Concomitant]
     Active Substance: CYANOCOBALAMIN
     Indication: SUPPLEMENTATION THERAPY
     Dosage: UNK
     Route: 048
  34. CLOTRIMAZOLE AND BETAMETHASONE [Concomitant]
     Active Substance: BETAMETHASONE\CLOTRIMAZOLE
     Indication: ABDOMINAL ABSCESS
     Dosage: 1%-0.05 OUNCE
     Route: 061
     Dates: start: 20190108
  35. CLOTRIMAZOLE AND BETAMETHASONE [Concomitant]
     Active Substance: BETAMETHASONE\CLOTRIMAZOLE
     Indication: SKIN CANDIDA
  36. DCC-2618 [Suspect]
     Active Substance: RIPRETINIB
     Indication: GASTROINTESTINAL STROMAL TUMOUR
     Dosage: 150 MG, QD
     Route: 048
     Dates: start: 20170530, end: 20170724
  37. DCC-2618 [Suspect]
     Active Substance: RIPRETINIB
     Dosage: 150 MG, BID
     Route: 048
     Dates: start: 20180313, end: 20180423
  38. DCC-2618 [Suspect]
     Active Substance: RIPRETINIB
     Dosage: 150 MG, QD
     Route: 048
     Dates: start: 20180724, end: 20180820
  39. NEXIUM [Concomitant]
     Active Substance: ESOMEPRAZOLE MAGNESIUM
     Dosage: 40 MG, QD
     Route: 048
  40. SYNTHROID [Concomitant]
     Active Substance: LEVOTHYROXINE SODIUM
     Indication: HYPOTHYROIDISM
     Dosage: UNK
     Route: 048
     Dates: start: 20170614
  41. TYLENOL [Concomitant]
     Active Substance: ACETAMINOPHEN
     Indication: PAIN IN EXTREMITY
     Dosage: 325 MG, UNK
     Route: 048
     Dates: start: 20170822
  42. AZTREONAM. [Concomitant]
     Active Substance: AZTREONAM
     Indication: ABDOMINAL ABSCESS
     Dosage: UNK
     Route: 065
     Dates: start: 20180707
  43. KAYEXALATE [Concomitant]
     Active Substance: SODIUM POLYSTYRENE SULFONATE
     Indication: HYPERKALAEMIA
     Dosage: 30 MILLIGRAM
     Route: 048
     Dates: start: 20170530

REACTIONS (1)
  - Cardiomyopathy [Not Recovered/Not Resolved]

NARRATIVE: CASE EVENT DATE: 20190402
